FAERS Safety Report 16449383 (Version 6)
Quarter: 2019Q3

REPORT INFORMATION
  Report Type: Report from Study
  Country: None (occurrence: CA)
  Receive Date: 20190619
  Receipt Date: 20190911
  Transmission Date: 20191004
  Serious: Yes (Hospitalization)
  Sender: FDA-Public Use
  Company Number: CA-ABBVIE-19S-028-2825828-00

PATIENT
  Age: 70 Year
  Sex: Male
  Weight: 81.8 kg

DRUGS (2)
  1. LEVODOPA/CARBIDOPA [Suspect]
     Active Substance: CARBIDOPA\LEVODOPA
     Indication: PARKINSON^S DISEASE
     Dosage: DUODOPA-LEVODOPA20MG/ML,CARBIDOPAMONOHYDRATE5MG/ML
     Route: 050
     Dates: start: 20181103, end: 20190619
  2. LEVODOPA/CARBIDOPA [Suspect]
     Active Substance: CARBIDOPA\LEVODOPA
     Route: 050
     Dates: start: 20190621

REACTIONS (11)
  - Paranoia [Unknown]
  - Subcutaneous haematoma [Unknown]
  - Skin laceration [Unknown]
  - Atelectasis [Unknown]
  - Contusion [Unknown]
  - Intentional medical device removal by patient [Unknown]
  - Haematoma [Unknown]
  - Delirium [Recovered/Resolved]
  - Fall [Recovered/Resolved]
  - Agitation [Unknown]
  - Confusional state [Unknown]

NARRATIVE: CASE EVENT DATE: 20190614
